FAERS Safety Report 10900652 (Version 1)
Quarter: 2015Q1

REPORT INFORMATION
  Report Type: Spontaneous
  Country: US (occurrence: US)
  Receive Date: 20150310
  Receipt Date: 20150310
  Transmission Date: 20150721
  Serious: Yes (Death, Other)
  Sender: FDA-Public Use
  Company Number: PHHY2015US025612

PATIENT
  Age: 43 Year
  Sex: Male

DRUGS (5)
  1. RIFAMPICIN [Suspect]
     Active Substance: RIFAMPIN
     Indication: KLEBSIELLA BACTERAEMIA
     Route: 065
  2. DORIPENEM [Concomitant]
     Active Substance: DORIPENEM
     Indication: KLEBSIELLA BACTERAEMIA
     Route: 065
  3. TIGECYCLINE [Concomitant]
     Active Substance: TIGECYCLINE
     Indication: KLEBSIELLA BACTERAEMIA
     Route: 065
  4. COLISTIN [Concomitant]
     Active Substance: COLISTIN
     Indication: KLEBSIELLA BACTERAEMIA
     Route: 065
  5. GENTAMICIN. [Suspect]
     Active Substance: GENTAMICIN
     Indication: KLEBSIELLA BACTERAEMIA
     Route: 065

REACTIONS (3)
  - Klebsiella bacteraemia [Fatal]
  - Drug resistance [Unknown]
  - Hyperbilirubinaemia [Unknown]
